FAERS Safety Report 8475431-3 (Version None)
Quarter: 2012Q2

REPORT INFORMATION
  Report Type: 
  Country: None (occurrence: None)
  Receive Date: 20120628
  Receipt Date: 20120620
  Transmission Date: 20120825
  Serious: Yes (Hospitalization)
  Sender: FDA-Public Use
  Company Number: SE-ROCHE-1081254

PATIENT
  Sex: Female

DRUGS (3)
  1. MONTELUKAST [Concomitant]
  2. XOLAIR [Suspect]
     Indication: HYPERSENSITIVITY
  3. XOLAIR [Suspect]
     Indication: ASTHMA

REACTIONS (8)
  - EOSINOPHILIA [None]
  - RASH [None]
  - ERYTHEMA [None]
  - VOMITING [None]
  - GASTRIC DISORDER [None]
  - CHEST PAIN [None]
  - NAUSEA [None]
  - NERVOUS SYSTEM DISORDER [None]
